FAERS Safety Report 21926975 (Version 8)
Quarter: 2025Q3

REPORT INFORMATION
  Report Type: Spontaneous
  Country: US (occurrence: US)
  Receive Date: 20230130
  Receipt Date: 20250702
  Transmission Date: 20251020
  Serious: No
  Sender: PFIZER
  Company Number: US-PFIZER INC-2021260112

PATIENT
  Age: 73 Year
  Sex: Female
  Weight: 65.77 kg

DRUGS (1)
  1. IBRANCE [Suspect]
     Active Substance: PALBOCICLIB
     Indication: Breast cancer female
     Route: 048
     Dates: start: 202001

REACTIONS (6)
  - Hypertension [Unknown]
  - Dysphonia [Recovering/Resolving]
  - Nasopharyngitis [Recovered/Resolved]
  - Asthenia [Unknown]
  - Arthritis [Unknown]
  - Product dose omission in error [Unknown]
